FAERS Safety Report 6988280-X (Version None)
Quarter: 2010Q3

REPORT INFORMATION
  Report Type: 
  Country: None (occurrence: None)
  Receive Date: 20100914
  Receipt Date: 20100819
  Transmission Date: 20110219
  Serious: Yes (Other)
  Sender: FDA-Public Use
  Company Number: DSA_43357_2010

PATIENT
  Sex: Female
  Weight: 58.9676 kg

DRUGS (4)
  1. XENAZINE [Suspect]
     Indication: HUNTINGTON'S DISEASE
     Dosage: 25 MG QAM, 37.5 MG QPM ORAL
     Route: 048
     Dates: start: 20090318
  2. LEXAPRO [Concomitant]
  3. CLONIDINE [Concomitant]
  4. LOVASTATIN [Concomitant]

REACTIONS (2)
  - SOMNOLENCE [None]
  - TARDIVE DYSKINESIA [None]
